FAERS Safety Report 20034504 (Version 1)
Quarter: 2021Q4

REPORT INFORMATION
  Report Type: Spontaneous
  Country: SE (occurrence: SE)
  Receive Date: 20211104
  Receipt Date: 20211104
  Transmission Date: 20220303
  Serious: Yes (Other)
  Sender: FDA-Public Use
  Company Number: SE-PFIZER INC-202100955586

PATIENT
  Age: 55 Year
  Sex: Female

DRUGS (3)
  1. METHOTREXATE [Suspect]
     Active Substance: METHOTREXATE
     Indication: Neurosarcoidosis
     Dosage: UNK
  2. PREDNISOLONE [Suspect]
     Active Substance: PREDNISOLONE
     Indication: Neurosarcoidosis
     Dosage: UNK
  3. BETAMETHASONE [Suspect]
     Active Substance: BETAMETHASONE
     Indication: Neurosarcoidosis
     Dosage: HIGH-DOSE

REACTIONS (4)
  - Cushing^s syndrome [Unknown]
  - Hyperglycaemia [Unknown]
  - Drug ineffective [Unknown]
  - Off label use [Unknown]
